FAERS Safety Report 8590493-0 (Version None)
Quarter: 2012Q3

REPORT INFORMATION
  Report Type: 
  Country: None (occurrence: None)
  Receive Date: 20120813
  Receipt Date: 20120806
  Transmission Date: 20120928
  Serious: Yes (Other)
  Sender: FDA-Public Use
  Company Number: US-PFIZER INC-2008030551

PATIENT
  Age: 81 Year
  Sex: Female
  Weight: 67.574 kg

DRUGS (11)
  1. LYRICA [Suspect]
     Indication: CERVICAL SPINAL STENOSIS
     Dosage: 50 MG, 4X/DAY
     Route: 048
     Dates: start: 20060101
  2. LYRICA [Suspect]
     Dosage: UNK
     Route: 048
  3. NORCO [Suspect]
     Indication: PAIN
     Dosage: UNK
  4. TIMOLOL [Concomitant]
     Indication: GLAUCOMA
     Dosage: UNK
  5. TRAVATAN [Concomitant]
     Indication: GLAUCOMA
     Dosage: UNK
  6. TRAMADOL [Concomitant]
     Dosage: UNK
  7. LYRICA [Suspect]
     Indication: NEUROPATHY PERIPHERAL
     Dosage: 150 MG, 2X/DAY
     Dates: start: 20060101
  8. LYRICA [Suspect]
     Indication: FIBROMYALGIA
     Dosage: 50MG IN THE MORNING AND 100MG AT NIGHT
     Route: 048
     Dates: start: 20060101
  9. LYRICA [Suspect]
     Indication: LUMBAR SPINAL STENOSIS
     Dosage: 50 MG, 3X/DAY
     Route: 048
     Dates: start: 20060101
  10. MOBIC [Concomitant]
     Dosage: 7.5 MG, 1X/DAY BEDTIME
  11. NEURONTIN [Concomitant]
     Dosage: UNK

REACTIONS (16)
  - BLINDNESS [None]
  - ABDOMINAL DISCOMFORT [None]
  - MACULAR DEGENERATION [None]
  - DRUG INEFFECTIVE [None]
  - PAIN [None]
  - CERVICAL SPINAL STENOSIS [None]
  - LUMBAR SPINAL STENOSIS [None]
  - CORNEAL OEDEMA [None]
  - WRONG TECHNIQUE IN DRUG USAGE PROCESS [None]
  - RASH MACULAR [None]
  - BALANCE DISORDER [None]
  - DIZZINESS [None]
  - FALL [None]
  - NAUSEA [None]
  - SOMNOLENCE [None]
  - BODY HEIGHT DECREASED [None]
